FAERS Safety Report 6978701-0 (Version None)
Quarter: 2010Q3

REPORT INFORMATION
  Report Type: 
  Country: None (occurrence: None)
  Receive Date: 20100913
  Receipt Date: 20100903
  Transmission Date: 20110219
  Serious: Yes (Hospitalization)
  Sender: FDA-Public Use
  Company Number: B0619983A

PATIENT
  Sex: Female

DRUGS (10)
  1. VALTREX [Suspect]
     Indication: HERPES ZOSTER
     Dosage: 500MG PER DAY
     Route: 048
     Dates: start: 20091217, end: 20091218
  2. RENAGEL [Concomitant]
     Route: 048
     Dates: start: 20091126, end: 20091218
  3. MANIDIPINE HYDROCHLORIDE [Concomitant]
     Dosage: 20MG PER DAY
     Route: 048
     Dates: start: 20091126
  4. FERROMIA [Concomitant]
     Dosage: 50MG PER DAY
     Route: 048
     Dates: start: 20060426, end: 20091218
  5. DOXAZOSIN MESILATE [Concomitant]
     Dosage: 4MG PER DAY
     Route: 048
     Dates: start: 20060330, end: 20091218
  6. PROMETHAZINE HYDROCHLORIDE [Concomitant]
     Dosage: 25MG PER DAY
     Route: 048
     Dates: start: 20091126, end: 20091218
  7. CINACALCET HYDROCHLORIDE [Concomitant]
     Dosage: 25MG PER DAY
     Route: 048
     Dates: start: 20091218, end: 20091218
  8. ELIETEN [Concomitant]
     Dosage: 10MG PER DAY
     Route: 048
     Dates: start: 20091208, end: 20091218
  9. ALLELOCK [Concomitant]
     Dosage: 5MG PER DAY
     Route: 048
     Dates: start: 20091126, end: 20091218
  10. D-ALFA [Concomitant]
     Dosage: .5MCG PER DAY
     Route: 048
     Dates: start: 20091126, end: 20091218

REACTIONS (11)
  - ALTERED STATE OF CONSCIOUSNESS [None]
  - ASTHENIA [None]
  - ATONIC SEIZURES [None]
  - CONFUSIONAL STATE [None]
  - DELIRIUM [None]
  - DYSARTHRIA [None]
  - NERVOUS SYSTEM DISORDER [None]
  - NEUROSIS [None]
  - RESPIRATORY DEPRESSION [None]
  - RESTLESSNESS [None]
  - VOMITING [None]
